FAERS Safety Report 5704370-3 (Version None)
Quarter: 2008Q2

REPORT INFORMATION
  Report Type: 
  Country: None (occurrence: None)
  Receive Date: 20080414
  Receipt Date: 20080404
  Transmission Date: 20081010
  Serious: Yes (Other)
  Sender: FDA-Public Use
  Company Number: A0713002A

PATIENT
  Age: 40 Year
  Sex: Female
  Weight: 61.4 kg

DRUGS (5)
  1. ADVAIR HFA [Suspect]
     Indication: ASTHMA
     Dosage: 1PUFF TWICE PER DAY
     Route: 065
  2. UNSPECIFIED MEDICATION [Concomitant]
  3. BECLOMETHASONE DIPROPIONATE [Concomitant]
     Dosage: 1SPR PER DAY
     Route: 045
  4. REACTINE [Concomitant]
     Indication: MULTIPLE ALLERGIES
     Route: 048
  5. PROMETRIUM [Concomitant]
     Route: 048

REACTIONS (2)
  - IMPAIRED HEALING [None]
  - TIBIA FRACTURE [None]
